FAERS Safety Report 24572934 (Version 1)
Quarter: 2024Q4

REPORT INFORMATION
  Report Type: Spontaneous
  Country: US (occurrence: US)
  Receive Date: 20241101
  Receipt Date: 20241101
  Transmission Date: 20250115
  Serious: No
  Sender: Tarsus Pharmaceuticals
  Company Number: US-TARSUS PHARMACEUTICALS-TSP-US-2024-000503

PATIENT
  Age: 54 Year
  Sex: Male
  Weight: 83.9 kg

DRUGS (3)
  1. XDEMVY [Suspect]
     Active Substance: LOTILANER
     Indication: Dermatitis
     Dosage: ONE DROP INTO EACH EYE TWICE A DAY
     Route: 047
     Dates: start: 20241016
  2. XDEMVY [Suspect]
     Active Substance: LOTILANER
     Indication: Blepharitis
  3. ERYTHROMYCIN [Concomitant]
     Active Substance: ERYTHROMYCIN
     Indication: Product used for unknown indication
     Dosage: UNK
     Route: 047

REACTIONS (3)
  - Burning sensation [Not Recovered/Not Resolved]
  - Tremor [Not Recovered/Not Resolved]
  - Product use in unapproved indication [Unknown]

NARRATIVE: CASE EVENT DATE: 20241016
